FAERS Safety Report 5545310-X (Version None)
Quarter: 2007Q4

REPORT INFORMATION
  Report Type: 
  Country: None (occurrence: None)
  Receive Date: 20071205
  Receipt Date: 20071205
  Transmission Date: 20080405
  Serious: Yes (Other)
  Sender: FDA-Public Use
  Company Number: None

PATIENT
  Age: 38 Year
  Sex: Male
  Weight: 102.0593 kg

DRUGS (1)
  1. ZOLPIDEM [Suspect]
     Indication: INSOMNIA
     Dosage: 10MG ONCE EACH PO
     Route: 048
     Dates: start: 20071120, end: 20071203

REACTIONS (3)
  - HALLUCINATION [None]
  - SLEEP-RELATED EATING DISORDER [None]
  - SOMNAMBULISM [None]
